FAERS Safety Report 4871569-8 (Version None)
Quarter: 2005Q4

REPORT INFORMATION
  Report Type: 
  Country: None (occurrence: None)
  Receive Date: 20051230
  Receipt Date: 20050707
  Transmission Date: 20060501
  Serious: Yes (Other)
  Sender: FDA-Public Use
  Company Number: 2005BI012896

PATIENT
  Age: 37 Year
  Sex: Female

DRUGS (1)
  1. AVONEX [Suspect]
     Indication: MULTIPLE SCLEROSIS
     Dosage: 30 UG; QW; IM
     Route: 030
     Dates: start: 19960101

REACTIONS (11)
  - ANTIBODY TEST POSITIVE [None]
  - ANTINUCLEAR ANTIBODY POSITIVE [None]
  - ATRIOVENTRICULAR BLOCK [None]
  - DNA ANTIBODY [None]
  - DRUG EXPOSURE BEFORE PREGNANCY [None]
  - DRUG EXPOSURE DURING PREGNANCY [None]
  - FOETAL DISORDER [None]
  - INTRA-UTERINE DEATH [None]
  - PREGNANCY [None]
  - RHEUMATOID FACTOR INCREASED [None]
  - SYSTEMIC LUPUS ERYTHEMATOSUS [None]
